FAERS Safety Report 10667548 (Version 2)
Quarter: 2014Q4

REPORT INFORMATION
  Report Type: Spontaneous
  Country: GB (occurrence: GB)
  Receive Date: 20141222
  Receipt Date: 20141222
  Transmission Date: 20150529
  Serious: Yes (Hospitalization, Other)
  Sender: FDA-Public Use
  Company Number: GB-GLAXOSMITHKLINE-GB2012000022

PATIENT
  Sex: Female

DRUGS (1)
  1. NICOTINE. [Suspect]
     Active Substance: NICOTINE
     Indication: SMOKING CESSATION THERAPY
     Route: 062

REACTIONS (5)
  - Application site reaction [Unknown]
  - Abortion spontaneous [Unknown]
  - Exposure during pregnancy [Unknown]
  - Adverse reaction [Unknown]
  - Stillbirth [Unknown]
